FAERS Safety Report 4384051-1 (Version None)
Quarter: 2004Q2

REPORT INFORMATION
  Report Type: 
  Country: None (occurrence: None)
  Receive Date: 20040609
  Receipt Date: 20040426
  Transmission Date: 20050107
  Serious: Yes (Disabling)
  Sender: FDA-Public Use
  Company Number: 1611

PATIENT
  Age: 65 Year
  Sex: Male

DRUGS (8)
  1. ONTAK [Suspect]
     Indication: CHRONIC LYMPHOCYTIC LEUKAEMIA
     Dates: start: 20030101, end: 20030101
  2. ONTAK [Suspect]
     Indication: CHRONIC LYMPHOCYTIC LEUKAEMIA
     Dosage: 18 UG/KG/D QD IV
     Route: 042
     Dates: start: 20031201, end: 20040314
  3. IMMUNE GLOBULIN INTRAVENOUS (HUMAN) [Concomitant]
  4. METOCLOPRAMIDE HYDROCHLORIDE [Concomitant]
  5. MULTIPLE PRIOR CHEMOTHERAPY REGIMENS [Concomitant]
  6. OMEPRAZOLE [Concomitant]
  7. PREDNISOLONE [Concomitant]
  8. TRIMETHOPRIM-SULFAMETHOXAZOLE [Concomitant]

REACTIONS (6)
  - BLINDNESS [None]
  - BLOOD LACTATE DEHYDROGENASE INCREASED [None]
  - COLOUR BLINDNESS [None]
  - CSF PROTEIN INCREASED [None]
  - DISEASE PROGRESSION [None]
  - RETINOPATHY [None]
